FAERS Safety Report 8255863-9 (Version None)
Quarter: 2012Q2

REPORT INFORMATION
  Report Type: 
  Country: None (occurrence: None)
  Receive Date: 20120403
  Receipt Date: 20120322
  Transmission Date: 20120825
  Serious: Yes (Other)
  Sender: FDA-Public Use
  Company Number: FR-ACTELION-A-CH2009-24530

PATIENT
  Sex: Female
  Weight: 61 kg

DRUGS (2)
  1. ZAVESCA [Suspect]
     Dosage: 100 MG, QD
     Route: 048
     Dates: start: 20050613, end: 20070101
  2. ZAVESCA [Suspect]
     Indication: GAUCHER'S DISEASE
     Dosage: 100 MG, QD
     Route: 048
     Dates: start: 20080429, end: 20081001

REACTIONS (6)
  - BONE LESION [None]
  - HEADACHE [None]
  - AMENORRHOEA [None]
  - TREMOR [None]
  - MEMORY IMPAIRMENT [None]
  - INSOMNIA [None]
